FAERS Safety Report 10996819 (Version 2)
Quarter: 2015Q2

REPORT INFORMATION
  Report Type: Spontaneous
  Country: US (occurrence: US)
  Receive Date: 20150408
  Receipt Date: 20150413
  Transmission Date: 20150821
  Serious: Yes (Other)
  Sender: FDA-Public Use
  Company Number: US-JNJFOC-20150323045

PATIENT
  Sex: Male
  Weight: 95.26 kg

DRUGS (5)
  1. PANCREAZE [Suspect]
     Active Substance: PANCRELIPASE
     Indication: PRODUCT USED FOR UNKNOWN INDICATION
     Route: 062
     Dates: end: 2014
  2. DURAGESIC [Suspect]
     Active Substance: FENTANYL
     Indication: PAIN
     Route: 062
     Dates: start: 2008
  3. PANCRELIPASE. [Concomitant]
     Active Substance: PANCRELIPASE
     Route: 048
     Dates: start: 2014
  4. OXYCODONE [Concomitant]
     Active Substance: OXYCODONE
     Route: 048
  5. DURAGESIC [Suspect]
     Active Substance: FENTANYL
     Indication: PAIN
     Route: 062

REACTIONS (5)
  - Weight increased [Unknown]
  - Abnormal loss of weight [Unknown]
  - Pancreatitis chronic [Not Recovered/Not Resolved]
  - Drug dose omission [Unknown]
  - Product quality issue [Unknown]

NARRATIVE: CASE EVENT DATE: 2008
